FAERS Safety Report 8839197 (Version 4)
Quarter: 2013Q3

REPORT INFORMATION
  Report Type: Report from Study
  Country: DE (occurrence: DE)
  Receive Date: 20121015
  Receipt Date: 20130823
  Transmission Date: 20140515
  Serious: Yes (Hospitalization, Other)
  Sender: FDA-Public Use
  Company Number: DE-TEVA-363853GER

PATIENT
  Age: 70 Year
  Sex: Female
  Weight: 72 kg

DRUGS (3)
  1. MYOCET [Suspect]
     Indication: BREAST CANCER
     Route: 042
     Dates: start: 20120830, end: 201210
  2. PACLITAXEL [Suspect]
     Indication: BREAST CANCER
     Dates: end: 201210
  3. BEVACIZUMAB [Suspect]
     Indication: BREAST CANCER
     Route: 042
     Dates: start: 20120830, end: 201210

REACTIONS (2)
  - Systemic inflammatory response syndrome [Recovered/Resolved]
  - Abscess [Recovered/Resolved]
